FAERS Safety Report 24148340 (Version 1)
Quarter: 2024Q3

REPORT INFORMATION
  Report Type: Spontaneous
  Country: US (occurrence: US)
  Receive Date: 20240729
  Receipt Date: 20240729
  Transmission Date: 20241017
  Serious: No
  Sender: PFIZER
  Company Number: US-PFIZER INC-202400223988

PATIENT
  Age: 60 Year
  Sex: Female

DRUGS (23)
  1. XELJANZ XR [Suspect]
     Active Substance: TOFACITINIB CITRATE
     Dosage: 11 MG, DAILY
     Route: 048
     Dates: start: 20240430
  2. CELECOXIB [Concomitant]
     Active Substance: CELECOXIB
  3. TRIAMCINOLONE ACETONIDE [Concomitant]
     Active Substance: TRIAMCINOLONE ACETONIDE
  4. MONTELUKAST SODIUM [Concomitant]
     Active Substance: MONTELUKAST SODIUM
  5. METHOTREXATE [Concomitant]
     Active Substance: METHOTREXATE
  6. ATENOLOL [Concomitant]
     Active Substance: ATENOLOL
  7. FOLIC ACID [Concomitant]
     Active Substance: FOLIC ACID
  8. ZYRTEC [Concomitant]
     Active Substance: CETIRIZINE HYDROCHLORIDE
  9. PANTOPRAZOLE [Concomitant]
     Active Substance: PANTOPRAZOLE
  10. CICLOPIROX [Concomitant]
     Active Substance: CICLOPIROX
  11. CULTURELLE [Concomitant]
     Active Substance: LACTOBACILLUS RHAMNOSUS
  12. EPIPEN [Concomitant]
     Active Substance: EPINEPHRINE
  13. MUPIROCIN [Concomitant]
     Active Substance: MUPIROCIN
  14. GUAR GUM [Concomitant]
     Active Substance: GUAR GUM
  15. DICLOFENAC [Concomitant]
     Active Substance: DICLOFENAC
  16. FLONASE [Concomitant]
     Active Substance: FLUTICASONE PROPIONATE
  17. ESTRACE [Concomitant]
     Active Substance: ESTRADIOL
  18. DIPHENHYDRAMINE [Concomitant]
     Active Substance: DIPHENHYDRAMINE
  19. CALCIUM [Concomitant]
     Active Substance: CALCIUM
  20. VITAMIN D NOS [Concomitant]
     Active Substance: CHOLECALCIFEROL\ERGOCALCIFEROL
  21. CLOBETASOL PROPIONATE [Concomitant]
     Active Substance: CLOBETASOL PROPIONATE
  22. KETOCONAZOLE [Concomitant]
     Active Substance: KETOCONAZOLE
  23. BIFIDOBACTERIUM ANIMALIS LACTIS [Concomitant]
     Active Substance: BIFIDOBACTERIUM ANIMALIS LACTIS

REACTIONS (6)
  - Therapeutic product effect incomplete [Not Recovered/Not Resolved]
  - Acne [Not Recovered/Not Resolved]
  - Ocular hyperaemia [Not Recovered/Not Resolved]
  - Ocular discomfort [Not Recovered/Not Resolved]
  - Lacrimation increased [Not Recovered/Not Resolved]
  - Eye irritation [Not Recovered/Not Resolved]

NARRATIVE: CASE EVENT DATE: 20240501
